FAERS Safety Report 4770567-2 (Version None)
Quarter: 2005Q3

REPORT INFORMATION
  Report Type: 
  Country: None (occurrence: None)
  Receive Date: 20050915
  Receipt Date: 20050721
  Transmission Date: 20060218
  Serious: No
  Sender: FDA-Public Use
  Company Number: US-GLAXOSMITHKLINE-A0567145A

PATIENT
  Age: 29 Year
  Sex: Female

DRUGS (1)
  1. ABREVA [Suspect]
     Indication: APHTHOUS STOMATITIS

REACTIONS (3)
  - GLOSSODYNIA [None]
  - SWOLLEN TONGUE [None]
  - TONGUE DRY [None]
